FAERS Safety Report 8463772-5 (Version None)
Quarter: 2012Q2

REPORT INFORMATION
  Report Type: 
  Country: None (occurrence: None)
  Receive Date: 20120323
  Receipt Date: 20111107
  Transmission Date: 20120825
  Serious: Yes (Other)
  Sender: FDA-Public Use
  Company Number: 163-21880-11111193

PATIENT
  Age: 64 Year
  Sex: Male
  Weight: 107.7293 kg

DRUGS (13)
  1. DECADRON [Concomitant]
  2. LASIX [Concomitant]
  3. VENLAFAXINE HCL [Concomitant]
  4. REVLIMID [Suspect]
     Indication: MULTIPLE MYELOMA
     Dosage: 25 MG, 21 DAYS EVERY 28 DAYS, PO; 10 MG, 1 IN 1 D, PO
     Route: 048
     Dates: start: 20111011, end: 20111031
  5. REVLIMID [Suspect]
     Indication: MULTIPLE MYELOMA
     Dosage: 25 MG, 21 DAYS EVERY 28 DAYS, PO; 10 MG, 1 IN 1 D, PO
     Route: 048
     Dates: start: 20100908, end: 20110901
  6. LOVENOX [Concomitant]
  7. PAMIDRONATE DISODIUM [Concomitant]
  8. KEFLEX [Concomitant]
  9. SERTRALINE HYDROCHLORIDE [Concomitant]
  10. OMEPRAZOLE [Concomitant]
  11. COUMADIN [Concomitant]
  12. SIMETHICONE (DIMETICONE, ACTIVATED) [Concomitant]
  13. ZOMETA [Concomitant]

REACTIONS (5)
  - DEEP VEIN THROMBOSIS [None]
  - OEDEMA PERIPHERAL [None]
  - NEUTROPENIA [None]
  - THROMBOCYTOPENIA [None]
  - LEUKOPENIA [None]
